FAERS Safety Report 16421836 (Version 1)
Quarter: 2019Q2

REPORT INFORMATION
  Report Type: Spontaneous
  Country: US (occurrence: US)
  Receive Date: 20190612
  Receipt Date: 20190612
  Transmission Date: 20190711
  Serious: Yes (Other)
  Sender: FDA-Public Use
  Company Number: US-PFIZER INC-2019246774

PATIENT
  Age: 2 Month
  Sex: Male

DRUGS (7)
  1. ALBUMIN [Concomitant]
     Active Substance: ALBUMIN HUMAN
     Indication: SUPPLEMENTATION THERAPY
     Dosage: UNK, DAILY
  2. ALBUMIN [Concomitant]
     Active Substance: ALBUMIN HUMAN
     Indication: DIARRHOEA HAEMORRHAGIC
  3. ALBUMIN [Concomitant]
     Active Substance: ALBUMIN HUMAN
     Indication: ECZEMA
  4. AZATHIOPRINE. [Suspect]
     Active Substance: AZATHIOPRINE
     Indication: IPEX SYNDROME
     Dosage: 1.5 MG/KG, UNK
  5. ALBUMIN [Concomitant]
     Active Substance: ALBUMIN HUMAN
     Indication: DIARRHOEA
  6. TACROLIMUS. [Suspect]
     Active Substance: TACROLIMUS
     Indication: IPEX SYNDROME
     Dosage: UNK
  7. ALBUMIN [Concomitant]
     Active Substance: ALBUMIN HUMAN
     Indication: PROTEIN-LOSING GASTROENTEROPATHY

REACTIONS (3)
  - Off label use [Unknown]
  - Pneumocystis jirovecii pneumonia [Recovered/Resolved]
  - Product use in unapproved indication [Unknown]
